FAERS Safety Report 4302948-5 (Version None)
Quarter: 2004Q1

REPORT INFORMATION
  Report Type: 
  Country: None (occurrence: None)
  Receive Date: 20040223
  Receipt Date: 20040223
  Transmission Date: 20041129
  Serious: Yes (Other)
  Sender: FDA-Public Use
  Company Number: None

PATIENT
  Age: 36 Year
  Sex: Female
  Weight: 65.7716 kg

DRUGS (5)
  1. LEVAQUIN [Suspect]
     Indication: CYSTITIS
     Dosage: 500 MG ONCE A DAY ORAL, 250 MG ONCE A DAY ORAL
     Route: 048
     Dates: start: 20030929, end: 20031009
  2. LEVAQUIN [Suspect]
     Indication: SINUSITIS
     Dosage: 500 MG ONCE A DAY ORAL, 250 MG ONCE A DAY ORAL
     Route: 048
     Dates: start: 20030929, end: 20031009
  3. LEVAQUIN [Suspect]
     Indication: CYSTITIS
     Dosage: 500 MG ONCE A DAY ORAL, 250 MG ONCE A DAY ORAL
     Route: 048
     Dates: start: 20031024, end: 20031031
  4. LEVAQUIN [Suspect]
     Indication: SINUSITIS
     Dosage: 500 MG ONCE A DAY ORAL, 250 MG ONCE A DAY ORAL
     Route: 048
     Dates: start: 20031024, end: 20031031
  5. DURATUSS [Concomitant]

REACTIONS (4)
  - ANXIETY [None]
  - FEAR [None]
  - PANIC ATTACK [None]
  - TREMOR [None]
